FAERS Safety Report 4622363-4 (Version None)
Quarter: 2005Q1

REPORT INFORMATION
  Report Type: 
  Country: None (occurrence: None)
  Receive Date: 20050325
  Receipt Date: 20050325
  Transmission Date: 20050727
  Serious: No
  Sender: FDA-Public Use
  Company Number: None

PATIENT
  Sex: Female
  Weight: 106 kg

DRUGS (1)
  1. PACLITAXEL [Suspect]
     Dosage: 175MG/M2 IV Q 2 WEEKS X 6 CYCLES
     Route: 042
     Dates: start: 20050302

REACTIONS (6)
  - ARTHRALGIA [None]
  - ASTHENIA [None]
  - DIFFICULTY IN WALKING [None]
  - DYSURIA [None]
  - PAIN [None]
  - PAIN IN EXTREMITY [None]
